FAERS Safety Report 7102677-9 (Version None)
Quarter: 2010Q4

REPORT INFORMATION
  Report Type: 
  Country: None (occurrence: None)
  Receive Date: 20101115
  Receipt Date: 20080505
  Transmission Date: 20110411
  Serious: Yes (Death, Hospitalization)
  Sender: FDA-Public Use
  Company Number: PHRM2008FR01452

PATIENT
  Sex: Male

DRUGS (5)
  1. GLEEVEC [Suspect]
     Indication: CHRONIC MYELOID LEUKAEMIA
     Dosage: 600 MG/DAY
     Route: 048
     Dates: start: 20010910, end: 20080201
  2. ZOMETA [Concomitant]
     Dosage: 4 MG, TIW
     Route: 042
     Dates: start: 20070312, end: 20070905
  3. ARANESP [Concomitant]
     Dosage: 500 MG, QMO
     Route: 058
     Dates: start: 20060927, end: 20080201
  4. INIPOMP [Concomitant]
     Indication: ABDOMINAL PAIN UPPER
     Route: 048
     Dates: start: 20070601, end: 20080201
  5. ARACYTINE [Concomitant]
     Route: 065
     Dates: start: 19970101

REACTIONS (19)
  - BLOOD BILIRUBIN INCREASED [None]
  - C-REACTIVE PROTEIN INCREASED [None]
  - CONFUSIONAL STATE [None]
  - CYTOLYTIC HEPATITIS [None]
  - DISORIENTATION [None]
  - DYSPEPSIA [None]
  - GASTROOESOPHAGEAL REFLUX DISEASE [None]
  - GENERAL PHYSICAL HEALTH DETERIORATION [None]
  - HAEMATEMESIS [None]
  - HAEMOGLOBIN DECREASED [None]
  - MEAN CELL VOLUME INCREASED [None]
  - METASTASES TO CENTRAL NERVOUS SYSTEM [None]
  - METASTASES TO LIVER [None]
  - PANCREATIC CARCINOMA METASTATIC [None]
  - REGURGITATION [None]
  - THROMBOCYTOPENIA [None]
  - TRANSAMINASES INCREASED [None]
  - VISUAL ACUITY REDUCED [None]
  - VOMITING [None]
